FAERS Safety Report 5582870-7 (Version None)
Quarter: 2008Q1

REPORT INFORMATION
  Report Type: 
  Country: None (occurrence: None)
  Receive Date: 20080107
  Receipt Date: 20071226
  Transmission Date: 20080703
  Serious: Yes (Hospitalization)
  Sender: FDA-Public Use
  Company Number: US-KINGPHARMUSA00001-K200701648

PATIENT

DRUGS (10)
  1. ALTACE [Suspect]
     Dosage: 10 MG, QD
     Route: 048
     Dates: end: 20070702
  2. LASIX [Suspect]
     Dosage: 40 MG, QD
     Route: 048
     Dates: end: 20070702
  3. ALDACTONE [Suspect]
     Dosage: 50 MG, QD
     Route: 048
     Dates: start: 20070626, end: 20070701
  4. ALDACTONE [Suspect]
     Dosage: 25 MG, QD
     Route: 048
     Dates: end: 20070625
  5. CORDARONE /00133102/ [Concomitant]
     Dosage: 200 MG, QD
     Route: 048
  6. ZANIDIP [Concomitant]
     Dosage: 10 MG, QD
     Route: 048
  7. JOSIR [Concomitant]
     Dosage: .4 MG, QD
     Route: 048
  8. GLUCOPHAGE [Concomitant]
     Dosage: UNK, QD
     Route: 048
     Dates: end: 20070630
  9. PREVISCAN /00789001/ [Concomitant]
     Dosage: 20 MG, QD
     Route: 048
     Dates: end: 20070630
  10. PREVISCAN /00789001/ [Concomitant]
     Route: 048
     Dates: start: 20070101

REACTIONS (7)
  - ACUTE PRERENAL FAILURE [None]
  - CHOLESTASIS [None]
  - DIABETES MELLITUS INADEQUATE CONTROL [None]
  - DRUG INTERACTION [None]
  - GENERAL PHYSICAL HEALTH DETERIORATION [None]
  - OVERDOSE [None]
  - VOMITING [None]
